FAERS Safety Report 8270666-7 (Version None)
Quarter: 2012Q2

REPORT INFORMATION
  Report Type: 
  Country: None (occurrence: None)
  Receive Date: 20120410
  Receipt Date: 20120331
  Transmission Date: 20120825
  Serious: Yes (Other)
  Sender: FDA-Public Use
  Company Number: US-SANOFI-AVENTIS-2012SA023078

PATIENT
  Age: 34 Year
  Sex: Female

DRUGS (1)
  1. SELENIUM SULFIDE [Suspect]
     Route: 061
     Dates: start: 20120331, end: 20120331

REACTIONS (2)
  - ALOPECIA [None]
  - SKIN BURNING SENSATION [None]
